FAERS Safety Report 7812295-2 (Version None)
Quarter: 2011Q4

REPORT INFORMATION
  Report Type: 
  Country: None (occurrence: None)
  Receive Date: 20111013
  Receipt Date: 20111005
  Transmission Date: 20120403
  Serious: Yes (Death, Life-Threatening, Hospitalization)
  Sender: FDA-Public Use
  Company Number: MX-JNJFOC-20110910122

PATIENT
  Sex: Female
  Weight: 36.8 kg

DRUGS (7)
  1. FOLIC ACID [Concomitant]
     Indication: PROPHYLAXIS
     Route: 048
     Dates: start: 20100816
  2. GOLIMUMAB [Suspect]
     Route: 042
     Dates: start: 20110316
  3. PLACEBO [Suspect]
     Route: 042
     Dates: start: 20110316
  4. METOCLOPRAMIDE [Concomitant]
     Indication: PROPHYLAXIS
     Route: 048
     Dates: start: 20091220
  5. GOLIMUMAB [Suspect]
     Indication: RHEUMATOID ARTHRITIS
     Route: 042
     Dates: start: 20100901
  6. PLACEBO [Suspect]
     Indication: RHEUMATOID ARTHRITIS
     Route: 042
     Dates: start: 20100901
  7. INDOMETACIN [Concomitant]
     Indication: RHEUMATOID ARTHRITIS
     Route: 048
     Dates: start: 20101209

REACTIONS (3)
  - SEPSIS [None]
  - CARDIO-RESPIRATORY ARREST [None]
  - TUBERCULOSIS [None]
